FAERS Safety Report 6904427-5 (Version None)
Quarter: 2010Q3

REPORT INFORMATION
  Report Type: 
  Country: None (occurrence: None)
  Receive Date: 20100804
  Receipt Date: 20090522
  Transmission Date: 20110219
  Serious: No
  Sender: FDA-Public Use
  Company Number: US-PFIZER INC-2009218742

PATIENT
  Sex: Male
  Weight: 92.971 kg

DRUGS (1)
  1. LYRICA [Suspect]
     Indication: BACK PAIN
     Dosage: 50 MG, 3X/DAY
     Dates: end: 20090522

REACTIONS (4)
  - DRUG INEFFECTIVE [None]
  - FALL [None]
  - FATIGUE [None]
  - MUSCULAR WEAKNESS [None]
